FAERS Safety Report 5322794-3 (Version None)
Quarter: 2007Q2

REPORT INFORMATION
  Report Type: 
  Country: None (occurrence: None)
  Receive Date: 20070511
  Receipt Date: 20070502
  Transmission Date: 20071010
  Serious: Yes (Hospitalization, Other)
  Sender: FDA-Public Use
  Company Number: US-PFIZER INC-2007016954

PATIENT
  Sex: Male
  Weight: 92.4 kg

DRUGS (1)
  1. LIPITOR [Suspect]
     Indication: DYSLIPIDAEMIA
     Route: 048

REACTIONS (3)
  - BILIRUBIN CONJUGATED INCREASED [None]
  - JAUNDICE CHOLESTATIC [None]
  - STREPTOCOCCAL SEPSIS [None]
